FAERS Safety Report 7917018-4 (Version None)
Quarter: 2011Q4

REPORT INFORMATION
  Report Type: 
  Country: None (occurrence: None)
  Receive Date: 20111116
  Receipt Date: 20111103
  Transmission Date: 20120403
  Serious: Yes (Other)
  Sender: FDA-Public Use
  Company Number: DK-NOVOPROD-338819

PATIENT

DRUGS (6)
  1. FLUTICASONE PROPIONATE/SALMETEROL [Concomitant]
     Indication: ASTHMA
  2. METFORMIN HCL [Concomitant]
     Indication: TYPE 2 DIABETES MELLITUS
  3. GESTODENE AND ETHINYL ESTRADIOL [Concomitant]
  4. BRICANYL [Concomitant]
     Indication: ASTHMA
  5. VICTOZA [Suspect]
     Indication: TYPE 2 DIABETES MELLITUS
     Dosage: UNK
     Route: 058
     Dates: start: 20091101
  6. LANSOPRAZOLE [Concomitant]
     Indication: GASTRIC PH DECREASED

REACTIONS (1)
  - LOSS OF CONSCIOUSNESS [None]
